FAERS Safety Report 7183679-3 (Version None)
Quarter: 2010Q4

REPORT INFORMATION
  Report Type: 
  Country: None (occurrence: None)
  Receive Date: 20101220
  Receipt Date: 20101220
  Transmission Date: 20110411
  Serious: Yes (Hospitalization)
  Sender: FDA-Public Use
  Company Number: None

PATIENT
  Age: 78 Year
  Sex: Male
  Weight: 56 kg

DRUGS (17)
  1. DILTIAZEM [Suspect]
     Indication: ATRIAL FIBRILLATION
     Dosage: 120MG ER BID PO CHRONIC
     Route: 048
  2. DIGOXIN [Suspect]
     Indication: ATRIAL FIBRILLATION
     Dosage: 125 MEQ Q48 HR PO RECENT
     Route: 048
  3. VIT C [Concomitant]
  4. HYDROCORTISONE [Concomitant]
  5. M.V.I. [Concomitant]
  6. ZINC SULFATE [Concomitant]
  7. ASA [Concomitant]
  8. ATROVENT [Concomitant]
  9. ALBUTEROL [Concomitant]
  10. OMEPRAZOLE [Concomitant]
  11. COLACE [Concomitant]
  12. GABAPENTIN [Concomitant]
  13. NAMENDA [Concomitant]
  14. FLONASE [Concomitant]
  15. CYANOCOBALAMIN [Concomitant]
  16. TYLENOL [Concomitant]
  17. BUMEX [Suspect]

REACTIONS (3)
  - PYREXIA [None]
  - RASH MACULO-PAPULAR [None]
  - SUPERINFECTION [None]
